FAERS Safety Report 6121268-X (Version None)
Quarter: 2009Q1

REPORT INFORMATION
  Report Type: 
  Country: None (occurrence: None)
  Receive Date: 20090312
  Receipt Date: 20090312
  Transmission Date: 20090719
  Serious: Yes (Other)
  Sender: FDA-Public Use
  Company Number: None

PATIENT
  Age: 55 Year
  Sex: Female
  Weight: 58.9676 kg

DRUGS (1)
  1. CELEBREX [Suspect]
     Indication: TRIGGER FINGER
     Dates: start: 20070425, end: 20070430

REACTIONS (5)
  - BLOOD URINE PRESENT [None]
  - FLANK PAIN [None]
  - GASTRITIS [None]
  - NO THERAPEUTIC RESPONSE [None]
  - PROTEIN URINE PRESENT [None]
